FAERS Safety Report 14821811 (Version 1)
Quarter: 2018Q2

REPORT INFORMATION
  Report Type: Spontaneous
  Country: US (occurrence: US)
  Receive Date: 20180427
  Receipt Date: 20180427
  Transmission Date: 20180711
  Serious: No
  Sender: FDA-Public Use
  Company Number: US-TEVA-2018-US-866632

PATIENT
  Sex: Female

DRUGS (1)
  1. MUPIROCIN. [Suspect]
     Active Substance: MUPIROCIN
     Indication: CELLULITIS STAPHYLOCOCCAL
     Dosage: 6 PERCENT DAILY;
     Route: 045
     Dates: start: 20180223, end: 20180228

REACTIONS (4)
  - Bacterial infection [Unknown]
  - Feeling abnormal [Unknown]
  - Pruritus [Unknown]
  - Epistaxis [Unknown]

NARRATIVE: CASE EVENT DATE: 20180223
